FAERS Safety Report 25168289 (Version 2)
Quarter: 2025Q2

REPORT INFORMATION
  Report Type: Spontaneous
  Country: US (occurrence: US)
  Receive Date: 20250407
  Receipt Date: 20250416
  Transmission Date: 20250717
  Serious: Yes (Life-Threatening, Hospitalization)
  Sender: TEVA
  Company Number: US-TEVA-VS-3317176

PATIENT
  Age: 84 Year
  Sex: Female

DRUGS (1)
  1. PROPOFOL [Suspect]
     Active Substance: PROPOFOL
     Indication: General anaesthesia
     Route: 042

REACTIONS (2)
  - Apnoea [Unknown]
  - Unresponsive to stimuli [Unknown]
